FAERS Safety Report 22737169 (Version 2)
Quarter: 2024Q1

REPORT INFORMATION
  Report Type: Spontaneous
  Country: SI (occurrence: SI)
  Receive Date: 20230721
  Receipt Date: 20240223
  Transmission Date: 20240410
  Serious: Yes (Hospitalization, Other)
  Sender: FDA-Public Use
  Company Number: SI-JNJFOC-20230725068

PATIENT
  Age: 71 Year
  Sex: Male

DRUGS (6)
  1. DEXAMETHASONE [Suspect]
     Active Substance: DEXAMETHASONE
     Indication: Plasma cell myeloma
     Dosage: FIRST CYCLE
     Route: 065
     Dates: start: 202306
  2. DEXAMETHASONE [Suspect]
     Active Substance: DEXAMETHASONE
     Dosage: SECOND CYCLE
     Route: 065
     Dates: start: 20230808
  3. REVLIMID [Suspect]
     Active Substance: LENALIDOMIDE
     Indication: Plasma cell myeloma
     Dosage: FIRST CYCLE
     Route: 065
     Dates: start: 202306
  4. REVLIMID [Suspect]
     Active Substance: LENALIDOMIDE
     Dosage: 2ND CYCLE
     Route: 065
     Dates: start: 20230808
  5. DARZALEX [Suspect]
     Active Substance: DARATUMUMAB
     Indication: Plasma cell myeloma
     Dosage: FIRST CYCLE
     Route: 058
     Dates: start: 202306
  6. DARZALEX [Suspect]
     Active Substance: DARATUMUMAB
     Dosage: SECOND CYCLE
     Route: 058
     Dates: start: 20230808

REACTIONS (9)
  - Septic shock [Unknown]
  - Cellulitis [Unknown]
  - Rhabdomyolysis [Unknown]
  - Necrotising fasciitis [Unknown]
  - Acute kidney injury [Unknown]
  - Neutropenia [Not Recovered/Not Resolved]
  - Febrile neutropenia [Unknown]
  - Normocytic anaemia [Unknown]
  - Back pain [Unknown]
